FAERS Safety Report 23062844 (Version 1)
Quarter: 2023Q4

REPORT INFORMATION
  Report Type: Report from Study
  Country: US (occurrence: US)
  Receive Date: 20231013
  Receipt Date: 20231013
  Transmission Date: 20240110
  Serious: Yes (Other)
  Sender: FDA-Public Use
  Company Number: US-002147023-NVSC2023US217920

PATIENT
  Age: 56 Year
  Sex: Male
  Weight: 92.99 kg

DRUGS (1)
  1. COSENTYX [Suspect]
     Active Substance: SECUKINUMAB
     Indication: Arthritis
     Dosage: UNK UNK, Q2W
     Route: 058
     Dates: start: 202302

REACTIONS (6)
  - Abdominal hernia [Unknown]
  - Post procedural complication [Unknown]
  - Anxiety [Unknown]
  - Tremor [Unknown]
  - Stress [Unknown]
  - Product use in unapproved indication [Unknown]

NARRATIVE: CASE EVENT DATE: 20230301
